FAERS Safety Report 5978487-2 (Version None)
Quarter: 2008Q4

REPORT INFORMATION
  Report Type: 
  Country: None (occurrence: None)
  Receive Date: 20081204
  Receipt Date: 20081126
  Transmission Date: 20090506
  Serious: Yes (Hospitalization)
  Sender: FDA-Public Use
  Company Number: JP-ABBOTT-08P-087-0488113-00

PATIENT
  Sex: Male
  Weight: 87 kg

DRUGS (27)
  1. KLARICID TABLETS [Suspect]
     Indication: BRONCHITIS
     Route: 048
     Dates: start: 20081015, end: 20081023
  2. FUDOSTEINE [Suspect]
     Indication: PRODUCTIVE COUGH
     Route: 048
     Dates: start: 20081015, end: 20081023
  3. FUDOSTEINE [Suspect]
     Indication: RESPIRATORY TRACT INFECTION
  4. SERETIDE [Concomitant]
     Indication: ASTHMA
     Route: 055
     Dates: start: 20080929
  5. AMBROXOL HYDROCHLORIDE [Concomitant]
     Indication: PRODUCTIVE COUGH
     Route: 048
     Dates: start: 20071219, end: 20081023
  6. MAGNESIUM OXIDE [Concomitant]
     Indication: CONSTIPATION
     Route: 048
     Dates: start: 20070905
  7. RAMATROBAN [Concomitant]
     Indication: RHINITIS
     Route: 048
     Dates: start: 20070905
  8. ROXATIDINE ACETATE HCL [Concomitant]
     Indication: GASTRIC ULCER
     Route: 048
     Dates: start: 20070905
  9. MAPROTILINE HYDROCHLORIDE [Concomitant]
     Indication: DEPRESSION
     Route: 048
     Dates: start: 20080605
  10. TAMSULOSIN HCL [Concomitant]
     Indication: BENIGN PROSTATIC HYPERPLASIA
     Route: 048
     Dates: start: 20070605
  11. ETHYL LOFLAZEPATE [Concomitant]
     Indication: INSOMNIA
     Route: 048
     Dates: start: 20071219
  12. ALOSENN [Concomitant]
     Indication: CONSTIPATION
     Route: 048
     Dates: start: 20071105
  13. TEPRENONE [Concomitant]
     Indication: GASTRITIS
     Route: 048
     Dates: start: 20071219
  14. ZOLPIDEM TARTRATE [Concomitant]
     Indication: INSOMNIA
     Route: 048
     Dates: start: 20071219
  15. CERNILTON [Concomitant]
     Indication: RESIDUAL URINE
     Route: 048
     Dates: start: 20080903
  16. TIZANIDINE HYDROCHLORIDE [Concomitant]
     Indication: BACK PAIN
     Route: 048
     Dates: start: 20071219
  17. LIMAPROST [Concomitant]
     Indication: DRUG USE FOR UNKNOWN INDICATION
     Route: 048
     Dates: start: 20081023
  18. AMLODIN OD [Concomitant]
     Indication: DRUG USE FOR UNKNOWN INDICATION
     Route: 048
     Dates: start: 20081023
  19. TELMISARTAN [Concomitant]
     Indication: DRUG USE FOR UNKNOWN INDICATION
     Route: 048
     Dates: start: 20081023
  20. NICORANDIL [Concomitant]
     Indication: DRUG USE FOR UNKNOWN INDICATION
     Route: 048
     Dates: start: 20081023
  21. DICLOFENAC SODIUM [Concomitant]
     Indication: DRUG USE FOR UNKNOWN INDICATION
     Dosage: ROUTE:  PR
     Dates: start: 20081023
  22. AMLODIPINE BESYLATE [Concomitant]
     Indication: HYPERTENSION
     Route: 048
  23. BETAXOLOL HYDROCHLORIDE [Concomitant]
     Indication: HYPERTENSION
     Route: 048
     Dates: end: 20081112
  24. HERBAL MEDICINE (DAI-SAIKO-TO) [Concomitant]
     Indication: HYPERTENSION
     Route: 048
     Dates: end: 20081112
  25. NICORANDIL [Concomitant]
     Indication: ANGINA PECTORIS
     Route: 048
     Dates: end: 20081112
  26. LOXOPROFEN SODIUM [Concomitant]
     Indication: MUSCULOSKELETAL PAIN
     Route: 048
     Dates: start: 20070605
  27. LIMAPROST [Concomitant]
     Indication: SPINAL COLUMN STENOSIS
     Route: 048
     Dates: start: 20080312

REACTIONS (4)
  - CHROMATURIA [None]
  - HEPATIC FUNCTION ABNORMAL [None]
  - MYALGIA [None]
  - RHABDOMYOLYSIS [None]
